FAERS Safety Report 11009789 (Version 1)
Quarter: 2015Q2

REPORT INFORMATION
  Report Type: Spontaneous
  Country: US (occurrence: None)
  Receive Date: 20150409
  Receipt Date: 20150409
  Transmission Date: 20150821
  Serious: No
  Sender: FDA-Public Use
  Company Number: None

PATIENT
  Age: 55 Year
  Sex: Male
  Weight: 127.01 kg

DRUGS (1)
  1. LEVOFLAXIN [Suspect]
     Active Substance: LEVOFLOXACIN
     Indication: EAR INFECTION
     Dosage: 1 PILL ONCE DAILY
     Route: 048

REACTIONS (2)
  - Arthralgia [None]
  - Musculoskeletal pain [None]

NARRATIVE: CASE EVENT DATE: 20141015
